FAERS Safety Report 20914282 (Version 2)
Quarter: 2022Q2

REPORT INFORMATION
  Report Type: Spontaneous
  Country: US (occurrence: US)
  Receive Date: 20220604
  Receipt Date: 20220627
  Transmission Date: 20220721
  Serious: No
  Sender: FDA-Public Use
  Company Number: US-SA-SAC20220520000145

PATIENT
  Age: 79 Year
  Sex: Female
  Weight: 229 kg

DRUGS (8)
  1. DUPIXENT [Suspect]
     Active Substance: DUPILUMAB
     Indication: Dermatitis atopic
     Dosage: 300 MG, QOW
     Route: 058
     Dates: start: 20220420
  2. SYSTANE (HYPROMELLOSE 2910 (4000 MPA.S)) [Concomitant]
     Active Substance: HYPROMELLOSE 2910 (4000 MPA.S)
     Dosage: SYSTANE 0.3 %-0.4% DROPS
  3. PIMECROLIMUS [Concomitant]
     Active Substance: PIMECROLIMUS
  4. NYSTATIN;TRIAMCINOLONE [Concomitant]
  5. BIFIDOBACTERIUM ANIMALIS LACTIS [Concomitant]
     Active Substance: BIFIDOBACTERIUM ANIMALIS LACTIS
  6. VITAMIN D3 [Concomitant]
     Active Substance: CHOLECALCIFEROL
     Dosage: VITAMIN D3 25 MCG
  7. ASPIRIN [Concomitant]
     Active Substance: ASPIRIN
  8. CERAVE HEALING [Concomitant]
     Active Substance: PETROLATUM

REACTIONS (7)
  - Weight increased [Unknown]
  - Food craving [Unknown]
  - Dry skin [Unknown]
  - Visual impairment [Unknown]
  - Pruritus [Unknown]
  - Dry eye [Unknown]
  - Therapeutic response decreased [Unknown]

NARRATIVE: CASE EVENT DATE: 20220101
